FAERS Safety Report 18677514 (Version 1)
Quarter: 2020Q4

REPORT INFORMATION
  Report Type: Spontaneous
  Country: US (occurrence: US)
  Receive Date: 20201229
  Receipt Date: 20201229
  Transmission Date: 20210114
  Serious: Yes (Death)
  Sender: FDA-Public Use
  Company Number: US-TORRENT-00010580

PATIENT
  Age: 72 Year
  Sex: Male

DRUGS (1)
  1. ACICLOVIR [Suspect]
     Active Substance: ACYCLOVIR
     Indication: HERPES SIMPLEX
     Route: 042

REACTIONS (1)
  - Condition aggravated [Fatal]
